FAERS Safety Report 24775432 (Version 1)
Quarter: 2024Q4

REPORT INFORMATION
  Report Type: Spontaneous
  Country: US (occurrence: US)
  Receive Date: 20241226
  Receipt Date: 20241226
  Transmission Date: 20250114
  Serious: No
  Sender: VIIV
  Company Number: US-VIIV HEALTHCARE-US2024158432

PATIENT
  Age: 37 Year

DRUGS (1)
  1. DOVATO [Suspect]
     Active Substance: DOLUTEGRAVIR SODIUM\LAMIVUDINE
     Indication: Acquired immunodeficiency syndrome
     Dosage: UNK
     Dates: start: 20241215

REACTIONS (1)
  - Product dose omission issue [Unknown]

NARRATIVE: CASE EVENT DATE: 20241216
